FAERS Safety Report 6857947-6 (Version None)
Quarter: 2010Q3

REPORT INFORMATION
  Report Type: 
  Country: None (occurrence: None)
  Receive Date: 20100714
  Receipt Date: 20100701
  Transmission Date: 20110219
  Serious: Yes (Hospitalization)
  Sender: FDA-Public Use
  Company Number: CN-JNJFOC-20100700767

PATIENT
  Age: 27 Year
  Sex: Male
  Weight: 65 kg

DRUGS (1)
  1. DECITABINE (DECITABINE) LYOPHILIZED POWDER [Suspect]
     Indication: MYELODYSPLASTIC SYNDROME
     Dosage: 19.5 MG, 1 IN 8 HOUR, INTRAVENOUS
     Route: 042
     Dates: start: 20100611, end: 20100614

REACTIONS (2)
  - APPENDICITIS [None]
  - BODY TEMPERATURE DECREASED [None]
